FAERS Safety Report 10518887 (Version 1)
Quarter: 2014Q4

REPORT INFORMATION
  Report Type: Spontaneous
  Country: GB (occurrence: GB)
  Receive Date: 20141015
  Receipt Date: 20141015
  Transmission Date: 20150528
  Serious: Yes (Other)
  Sender: FDA-Public Use
  Company Number: GB-TEVA-514527ISR

PATIENT
  Age: 77 Year
  Sex: Female

DRUGS (9)
  1. SIMVASTATIN. [Concomitant]
     Active Substance: SIMVASTATIN
     Dosage: 40MG ON
     Route: 048
  2. OXYCONTIN [Concomitant]
     Active Substance: OXYCODONE HYDROCHLORIDE
  3. DORZOLAMIDE [Concomitant]
     Active Substance: DORZOLAMIDE
     Dosage: 1 DROP TDS
     Route: 061
  4. OXYCODONE [Suspect]
     Active Substance: OXYCODONE
     Indication: PNEUMONIA
     Dosage: 400 MILLIGRAM DAILY; MODIFIED-RELEASE TABLET
     Route: 048
     Dates: end: 20140717
  5. PREGABALIN. [Concomitant]
     Active Substance: PREGABALIN
     Dosage: 400 MILLIGRAM DAILY;
     Route: 048
  6. CLARITHROMYCIN. [Suspect]
     Active Substance: CLARITHROMYCIN
     Indication: PNEUMONIA
     Dosage: 1000 MILLIGRAM DAILY;
     Route: 048
     Dates: start: 20140713, end: 20140717
  7. OXYNORM [Concomitant]
     Active Substance: OXYCODONE HYDROCHLORIDE
  8. AMOXICILLIN. [Concomitant]
     Active Substance: AMOXICILLIN
     Dosage: 3 GRAM DAILY;
     Route: 048
     Dates: start: 20140713, end: 20140720
  9. PARACETAMOL [Concomitant]
     Active Substance: ACETAMINOPHEN
     Dosage: 1G ODS
     Route: 048

REACTIONS (4)
  - Bradycardia [Unknown]
  - Miosis [Unknown]
  - Unresponsive to stimuli [Unknown]
  - Accidental overdose [Recovered/Resolved]

NARRATIVE: CASE EVENT DATE: 20140717
